FAERS Safety Report 7348327-8 (Version None)
Quarter: 2011Q1

REPORT INFORMATION
  Report Type: 
  Country: None (occurrence: None)
  Receive Date: 20110311
  Receipt Date: 20110228
  Transmission Date: 20110831
  Serious: Yes (Hospitalization, Other)
  Sender: FDA-Public Use
  Company Number: US-BAYER-2011-018494

PATIENT
  Sex: Male

DRUGS (12)
  1. LISINOPRIL [Concomitant]
  2. LIDOCAINE [Concomitant]
  3. COUMADIN [Suspect]
     Indication: THROMBOSIS PROPHYLAXIS
     Dosage: UNK
     Dates: start: 20100924, end: 20110103
  4. COLCHICINE [Concomitant]
  5. METOLAZONE [Concomitant]
  6. UNCODEABLE ^INVESTIGATIONAL DRUG^ [Suspect]
     Indication: THROMBOSIS PROPHYLAXIS
     Dosage: 10 MG, QD
     Route: 048
     Dates: start: 20100108, end: 20100119
  7. LASIX [Concomitant]
  8. NITROGLYCERIN [Concomitant]
  9. ASPIRIN [Suspect]
     Dosage: 81 MG, QD
     Dates: start: 20100924, end: 20110103
  10. PROZAC [Concomitant]
  11. WARFARIN SODIUM [Suspect]
     Indication: THROMBOSIS PROPHYLAXIS
     Dosage: UNK
     Route: 048
     Dates: start: 20100108, end: 20100118
  12. SIMVASTATIN [Concomitant]

REACTIONS (2)
  - HAEMATOCHEZIA [None]
  - GASTROINTESTINAL HAEMORRHAGE [None]
